FAERS Safety Report 23054431 (Version 2)
Quarter: 2023Q4

REPORT INFORMATION
  Report Type: Spontaneous
  Country: FR (occurrence: FR)
  Receive Date: 20231011
  Receipt Date: 20231012
  Transmission Date: 20240110
  Serious: No
  Sender: FDA-Public Use
  Company Number: FR-002147023-NVSC2023FR218791

PATIENT
  Age: 6 Year
  Sex: Male

DRUGS (1)
  1. LAMISIL [Suspect]
     Active Substance: TERBINAFINE HYDROCHLORIDE
     Indication: Fungal infection
     Dosage: 250 MG, QD (? TABLET)
     Route: 065
     Dates: start: 20230905

REACTIONS (2)
  - Vomiting [Unknown]
  - Wrong technique in product usage process [Unknown]
